FAERS Safety Report 5673834-3 (Version None)
Quarter: 2008Q1

REPORT INFORMATION
  Report Type: 
  Country: None (occurrence: None)
  Receive Date: 20080319
  Receipt Date: 20080311
  Transmission Date: 20080703
  Serious: Yes (Other)
  Sender: FDA-Public Use
  Company Number: US-PFIZER INC-2008022351

PATIENT
  Sex: Female
  Weight: 127 kg

DRUGS (3)
  1. DETROL LA [Suspect]
     Indication: HYPERTONIC BLADDER
  2. ALEVE [Concomitant]
  3. METHYLSULFONYLMETHANE [Concomitant]
     Indication: ARTHRITIS

REACTIONS (5)
  - ABNORMAL SENSATION IN EYE [None]
  - AURICULAR SWELLING [None]
  - ERYTHEMA [None]
  - HEADACHE [None]
  - SWELLING FACE [None]
